FAERS Safety Report 5073266-5 (Version None)
Quarter: 2006Q3

REPORT INFORMATION
  Report Type: 
  Country: None (occurrence: None)
  Receive Date: 20060802
  Receipt Date: 20060725
  Transmission Date: 20061208
  Serious: Yes (Other)
  Sender: FDA-Public Use
  Company Number: 2006079408

PATIENT
  Age: 53 Year
  Sex: Male

DRUGS (11)
  1. LYRICA [Suspect]
     Dosage: 450 MG (150 MG 3 IN 1 D)
     Dates: start: 20051227, end: 20060307
  2. MORPHINE SULFATE [Concomitant]
  3. OXYCODONE (OXYCODONE) [Concomitant]
  4. SOMA [Concomitant]
  5. XANAX [Concomitant]
  6. ... [Suspect]
  7. NEURONTIN [Concomitant]
  8. // [Concomitant]
  9. ;; [Concomitant]
  10. '' [Concomitant]
  11. .. [Concomitant]

REACTIONS (3)
  - AGGRESSION [None]
  - HOSTILITY [None]
  - SUICIDAL IDEATION [None]
